FAERS Safety Report 7089915-6 (Version None)
Quarter: 2010Q4

REPORT INFORMATION
  Report Type: 
  Country: None (occurrence: None)
  Receive Date: 20101108
  Receipt Date: 20101029
  Transmission Date: 20110411
  Serious: Yes (Hospitalization, Other)
  Sender: FDA-Public Use
  Company Number: US-AMGEN-QUU416510

PATIENT

DRUGS (2)
  1. NPLATE [Suspect]
     Indication: IDIOPATHIC THROMBOCYTOPENIC PURPURA
     Dosage: 2 A?G/KG, UNK
     Dates: start: 20100513
  2. CORTICOSTEROIDS [Concomitant]
     Dosage: UNK
     Dates: start: 20100409

REACTIONS (10)
  - BLOOD CREATINE PHOSPHOKINASE INCREASED [None]
  - CARDIOMYOPATHY [None]
  - CHEST PAIN [None]
  - ECTOPIC PREGNANCY [None]
  - MYOCARDITIS [None]
  - NICOTINE DEPENDENCE [None]
  - PARAESTHESIA [None]
  - POSTOPERATIVE THROMBOSIS [None]
  - TROPONIN INCREASED [None]
  - WHITE BLOOD CELL COUNT INCREASED [None]
